FAERS Safety Report 11368139 (Version 1)
Quarter: 2015Q3

REPORT INFORMATION
  Report Type: Spontaneous
  Country: US (occurrence: None)
  Receive Date: 20150810
  Receipt Date: 20150810
  Transmission Date: 20151125
  Serious: Yes (Other)
  Sender: FDA-Public Use
  Company Number: 2015NUEUSA00514

PATIENT
  Age: 49 Year
  Sex: Female

DRUGS (7)
  1. NUEDEXTA [Suspect]
     Active Substance: DEXTROMETHORPHAN HYDROBROMIDE\QUINIDINE SULFATE
     Indication: AFFECT LABILITY
     Dates: start: 20150416, end: 20150429
  2. LEVOTHYROXINE. [Concomitant]
     Active Substance: LEVOTHYROXINE
  3. KLONOPIN [Concomitant]
     Active Substance: CLONAZEPAM
  4. METOPROLOL [Concomitant]
     Active Substance: METOPROLOL
  5. ADDERALL [Concomitant]
     Active Substance: AMPHETAMINE ASPARTATE\AMPHETAMINE SULFATE\DEXTROAMPHETAMINE SACCHARATE\DEXTROAMPHETAMINE SULFATE
  6. HYDROCHLOROTHIAZIDE AND TRIAMTERENE [Concomitant]
     Active Substance: HYDROCHLOROTHIAZIDE\TRIAMTERENE
  7. NEXIUM [Suspect]
     Active Substance: ESOMEPRAZOLE MAGNESIUM

REACTIONS (7)
  - Dermatitis bullous [None]
  - Cough [None]
  - Drug hypersensitivity [None]
  - Asthma [None]
  - Swelling [None]
  - Rash [None]
  - Dysuria [None]

NARRATIVE: CASE EVENT DATE: 20150411
